FAERS Safety Report 13612812 (Version 2)
Quarter: 2018Q1

REPORT INFORMATION
  Report Type: Spontaneous
  Country: US (occurrence: US)
  Receive Date: 20170605
  Receipt Date: 20180105
  Transmission Date: 20180508
  Serious: No
  Sender: FDA-Public Use
  Company Number: US-ALLERGAN-1717279US

PATIENT
  Sex: Male
  Weight: 83.9 kg

DRUGS (6)
  1. KYBELLA [Suspect]
     Active Substance: DEOXYCHOLIC ACID
     Dosage: 5CC, SINGLE
     Route: 058
     Dates: start: 20150827, end: 20150827
  2. KYBELLA [Suspect]
     Active Substance: DEOXYCHOLIC ACID
     Dosage: 4CC, SINGLE
     Route: 058
  3. KYBELLA [Suspect]
     Active Substance: DEOXYCHOLIC ACID
     Dosage: 5CC, SINGLE
     Route: 058
  4. KYBELLA [Suspect]
     Active Substance: DEOXYCHOLIC ACID
     Dosage: 5CC, SINGLE
     Route: 058
     Dates: start: 201507, end: 201507
  5. KYBELLA [Suspect]
     Active Substance: DEOXYCHOLIC ACID
     Indication: FAT TISSUE INCREASED
     Dosage: 5CC, SINGLE
     Route: 058
     Dates: start: 201603, end: 201605
  6. KYBELLA [Suspect]
     Active Substance: DEOXYCHOLIC ACID
     Dosage: 4CC, SINGLE
     Route: 058

REACTIONS (3)
  - Swelling [Unknown]
  - Contusion [Unknown]
  - Alopecia [Not Recovered/Not Resolved]
